FAERS Safety Report 6360647-2 (Version None)
Quarter: 2009Q3

REPORT INFORMATION
  Report Type: 
  Country: None (occurrence: None)
  Receive Date: 20090915
  Receipt Date: 20090901
  Transmission Date: 20100115
  Serious: Yes (Hospitalization)
  Sender: FDA-Public Use
  Company Number: US-1170791

PATIENT
  Sex: Female
  Weight: 63.9572 kg

DRUGS (2)
  1. TIMOLOL MALEATE [Suspect]
     Dosage: OPHTHALMIC
     Route: 047
  2. XALATAN [Concomitant]

REACTIONS (7)
  - ARRHYTHMIA [None]
  - BLOOD PRESSURE DECREASED [None]
  - EYE IRRITATION [None]
  - FATIGUE [None]
  - FEELING ABNORMAL [None]
  - PULSE PRESSURE INCREASED [None]
  - VISION BLURRED [None]
